FAERS Safety Report 7184143-8 (Version None)
Quarter: 2010Q4

REPORT INFORMATION
  Report Type: 
  Country: None (occurrence: None)
  Receive Date: 20101222
  Receipt Date: 20101213
  Transmission Date: 20110411
  Serious: Yes (Hospitalization)
  Sender: FDA-Public Use
  Company Number: IE-MEDIMMUNE-MEDI-0012004

PATIENT
  Sex: Male

DRUGS (3)
  1. SYNAGIS [Suspect]
     Route: 030
     Dates: start: 20100101, end: 20101015
  2. KAPSOVIT [Concomitant]
  3. FERROUS SULFATE [Concomitant]

REACTIONS (1)
  - BRONCHIOLITIS [None]
